FAERS Safety Report 10040654 (Version 1)
Quarter: 2014Q1

REPORT INFORMATION
  Report Type: Spontaneous
  Country: US (occurrence: US)
  Receive Date: 20140327
  Receipt Date: 20140327
  Transmission Date: 20141002
  Serious: No
  Sender: FDA-Public Use
  Company Number: US-B.I. PHARMACEUTICALS,INC./RIDGEFIELD-2014-BI-12501BP

PATIENT
  Age: 80 Year
  Sex: Female
  Weight: 156 kg

DRUGS (1)
  1. COMBIVENT [Suspect]
     Indication: NASAL CONGESTION
     Dosage: STRENGTH: 20 MCG / 100 MCG; DAILY DOSE: 160 MCG/800 MCG
     Route: 055
     Dates: start: 20140320

REACTIONS (4)
  - Nervousness [Recovered/Resolved]
  - Dizziness [Recovered/Resolved]
  - Overdose [Not Recovered/Not Resolved]
  - Off label use [Unknown]
